FAERS Safety Report 7156979-0 (Version None)
Quarter: 2010Q4

REPORT INFORMATION
  Report Type: 
  Country: None (occurrence: None)
  Receive Date: 20101214
  Receipt Date: 20100412
  Transmission Date: 20110411
  Serious: No
  Sender: FDA-Public Use
  Company Number: US-ASTRAZENECA-2010SE01415

PATIENT
  Age: 69 Year
  Sex: Male
  Weight: 55.3 kg

DRUGS (10)
  1. CRESTOR [Suspect]
     Indication: BLOOD CHOLESTEROL INCREASED
     Route: 048
  2. CRESTOR [Suspect]
     Indication: ARTERIAL DISORDER
     Route: 048
  3. CRESTOR [Suspect]
     Route: 048
     Dates: start: 20091101
  4. CRESTOR [Suspect]
     Route: 048
     Dates: start: 20091101
  5. ZETIA [Concomitant]
  6. RANEXA [Concomitant]
  7. ASPIRIN [Concomitant]
  8. DICLOFENAC SODIUM [Concomitant]
     Indication: ARTHRITIS
  9. CORAG [Concomitant]
     Indication: CARDIAC DISORDER
  10. HUMALOG [Concomitant]
     Indication: DIABETES MELLITUS
     Dosage: DAILY

REACTIONS (4)
  - BLOOD GLUCOSE INCREASED [None]
  - CHROMATURIA [None]
  - DIARRHOEA [None]
  - DYSURIA [None]
